FAERS Safety Report 22207878 (Version 4)
Quarter: 2025Q2

REPORT INFORMATION
  Report Type: Report from Study
  Country: CA (occurrence: CA)
  Receive Date: 20230413
  Receipt Date: 20250416
  Transmission Date: 20250716
  Serious: Yes (Hospitalization, Other)
  Sender: TAKEDA
  Company Number: CA-TAKEDA-2022TUS072059

PATIENT
  Sex: Female

DRUGS (11)
  1. VEDOLIZUMAB [Suspect]
     Active Substance: VEDOLIZUMAB
     Indication: Crohn^s disease
  2. VEDOLIZUMAB [Suspect]
     Active Substance: VEDOLIZUMAB
  3. VEDOLIZUMAB [Suspect]
     Active Substance: VEDOLIZUMAB
  4. VEDOLIZUMAB [Suspect]
     Active Substance: VEDOLIZUMAB
  5. VEDOLIZUMAB [Suspect]
     Active Substance: VEDOLIZUMAB
  6. FASLODEX [Concomitant]
     Active Substance: FULVESTRANT
  7. IBRANCE [Concomitant]
     Active Substance: PALBOCICLIB
  8. TELMISARTAN [Concomitant]
     Active Substance: TELMISARTAN
  9. BISOPROLOL [Concomitant]
     Active Substance: BISOPROLOL
  10. SYNTHROID [Concomitant]
     Active Substance: LEVOTHYROXINE SODIUM
  11. PURINETHOL [Concomitant]
     Active Substance: MERCAPTOPURINE

REACTIONS (3)
  - Lung neoplasm [Recovering/Resolving]
  - Pneumonia [Recovered/Resolved]
  - Illness [Unknown]
